FAERS Safety Report 9378625 (Version 1)
Quarter: 2013Q2

REPORT INFORMATION
  Report Type: Spontaneous
  Country: GB (occurrence: None)
  Receive Date: 20130626
  Receipt Date: 20130626
  Transmission Date: 20140414
  Serious: Yes (Other)
  Sender: FDA-Public Use
  Company Number: AUR-APL-2013-04960

PATIENT
  Sex: Female

DRUGS (1)
  1. MIRTAZAPINE (MIRTAZAPINE) [Suspect]
     Indication: PRODUCT USED FOR UNKNOWN INDICATION

REACTIONS (16)
  - Dizziness [None]
  - Insomnia [None]
  - Mouth ulceration [None]
  - Hyperhidrosis [None]
  - Body temperature increased [None]
  - Tremor [None]
  - Agitation [None]
  - Weight decreased [None]
  - Decreased appetite [None]
  - Dry throat [None]
  - Inflammation [None]
  - Pharyngeal oedema [None]
  - Lymphadenopathy [None]
  - Dysphagia [None]
  - Crying [None]
  - Tooth malformation [None]
